FAERS Safety Report 4960124-7 (Version None)
Quarter: 2006Q1

REPORT INFORMATION
  Report Type: 
  Country: None (occurrence: None)
  Receive Date: 20060328
  Receipt Date: 20060315
  Transmission Date: 20060701
  Serious: Yes (Hospitalization, Other)
  Sender: FDA-Public Use
  Company Number: 2006037343

PATIENT
  Age: 47 Year
  Sex: Female

DRUGS (8)
  1. LIPITOR [Suspect]
     Indication: BLOOD CHOLESTEROL INCREASED
     Dosage: 20 MG (20 MG, 1 IN 1D)
     Dates: start: 20040806
  2. LASIX [Concomitant]
  3. ANTIDEPRESSANTS (ANTIDEPRESSANTS) [Concomitant]
  4. ANTIHYPERTENSIVES (ANTIHYPERENSIVES) [Concomitant]
  5. ALL OTHER THERAPEUTIC PRODUCTS [Concomitant]
  6. ERYTHROMYCIN [Concomitant]
  7. ANALGESICS               (ANALGESCIS) [Concomitant]
  8. ANTIINFLAMMATORY/ANTIRHEUMATIC PRODUCTS [Concomitant]

REACTIONS (18)
  - ARTHRALGIA [None]
  - BLOOD PRESSURE DECREASED [None]
  - CELLULITIS [None]
  - CONDITION AGGRAVATED [None]
  - DEHYDRATION [None]
  - DIFFICULTY IN WALKING [None]
  - FIBROMYALGIA [None]
  - FLUID RETENTION [None]
  - JOINT RANGE OF MOTION DECREASED [None]
  - JOINT STIFFNESS [None]
  - MUSCLE ATROPHY [None]
  - MUSCULAR WEAKNESS [None]
  - MYALGIA [None]
  - OEDEMA PERIPHERAL [None]
  - PAIN IN EXTREMITY [None]
  - RENAL DISORDER [None]
  - RENAL IMPAIRMENT [None]
  - WEIGHT INCREASED [None]
